FAERS Safety Report 6486309-9 (Version None)
Quarter: 2009Q4

REPORT INFORMATION
  Report Type: 
  Country: None (occurrence: None)
  Receive Date: 20091209
  Receipt Date: 20090729
  Transmission Date: 20100525
  Serious: No
  Sender: FDA-Public Use
  Company Number: US-AMGEN-KDL357835

PATIENT
  Sex: Male

DRUGS (2)
  1. ENBREL [Suspect]
     Indication: JUVENILE ARTHRITIS
     Route: 058
     Dates: start: 20090721
  2. METHOTREXATE [Concomitant]
     Dates: start: 20090628

REACTIONS (3)
  - CRYING [None]
  - PAIN IN EXTREMITY [None]
  - RESTLESSNESS [None]
